FAERS Safety Report 8336162-3 (Version None)
Quarter: 2012Q1

REPORT INFORMATION
  Report Type: 
  Country: None (occurrence: None)
  Receive Date: 20120329
  Receipt Date: 20100308
  Transmission Date: 20120608
  Serious: Yes (Other)
  Sender: FDA-Public Use
  Company Number: PHHY2010US00671

PATIENT
  Age: 88 Year
  Sex: Female
  Weight: 47.2 kg

DRUGS (9)
  1. LEVOXYL [Concomitant]
  2. TENORMIN [Concomitant]
  3. ASPIRIN [Concomitant]
  4. LIPITOR [Concomitant]
  5. NORVASC [Concomitant]
  6. EXELON [Suspect]
     Indication: AMNESIA
     Dosage: 1/2 OF 4.6 MG, TOPICAL
     Route: 061
     Dates: start: 20090505, end: 20091231
  7. EXELON [Suspect]
     Indication: HALLUCINATION, AUDITORY
     Dosage: 1/2 OF 4.6 MG, TOPICAL
     Route: 061
     Dates: start: 20090505, end: 20091231
  8. EXELON [Suspect]
     Indication: DEMENTIA ALZHEIMER'S TYPE
     Dosage: 1/2 OF 4.6 MG, TOPICAL
     Route: 061
     Dates: start: 20090505, end: 20091231
  9. POTASSIUM CHLORIDE [Concomitant]

REACTIONS (4)
  - NAUSEA [None]
  - WEIGHT DECREASED [None]
  - DECREASED APPETITE [None]
  - WRONG TECHNIQUE IN DRUG USAGE PROCESS [None]
